FAERS Safety Report 17871363 (Version 2)
Quarter: 2021Q3

REPORT INFORMATION
  Report Type: Report from Study
  Country: CA (occurrence: CA)
  Receive Date: 20200608
  Receipt Date: 20210806
  Transmission Date: 20211014
  Serious: Yes (Hospitalization, Other)
  Sender: FDA-Public Use
  Company Number: CA-GILEAD-2020-0470618

PATIENT
  Age: 16 Year
  Sex: Male

DRUGS (1)
  1. AZTREONAM LYSINE [Suspect]
     Active Substance: AZTREONAM LYSINE
     Indication: CYSTIC FIBROSIS
     Route: 055

REACTIONS (2)
  - Cystic fibrosis [Unknown]
  - Decreased appetite [Unknown]

NARRATIVE: CASE EVENT DATE: 202005
